FAERS Safety Report 25501805 (Version 3)
Quarter: 2025Q3

REPORT INFORMATION
  Report Type: Spontaneous
  Country: CA (occurrence: CA)
  Receive Date: 20250702
  Receipt Date: 20250828
  Transmission Date: 20251021
  Serious: Yes (Death, Other)
  Sender: CELLTRION
  Company Number: CA-TAKEDA-2025TUS056609

PATIENT

DRUGS (126)
  1. INFLIXIMAB [Suspect]
     Active Substance: INFLIXIMAB
     Route: 065
  2. ADALIMUMAB [Suspect]
     Active Substance: ADALIMUMAB
     Route: 058
  3. PANTOPRAZOLE [Suspect]
     Active Substance: PANTOPRAZOLE
     Route: 065
  4. METHOTREXATE [Suspect]
     Active Substance: METHOTREXATE
     Route: 048
  5. ENBREL [Suspect]
     Active Substance: ETANERCEPT
     Route: 065
  6. HYDROCORTISONE SODIUM SUCCINATE [Suspect]
     Active Substance: HYDROCORTISONE SODIUM SUCCINATE
     Route: 065
  7. HYDROCORTISONE SODIUM SUCCINATE [Suspect]
     Active Substance: HYDROCORTISONE SODIUM SUCCINATE
     Route: 065
  8. METHYLPREDNISOLONE SODIUM SUCCINATE [Suspect]
     Active Substance: METHYLPREDNISOLONE SODIUM SUCCINATE
     Route: 065
  9. MESALAMINE [Suspect]
     Active Substance: MESALAMINE
     Route: 065
  10. MESALAMINE [Suspect]
     Active Substance: MESALAMINE
     Route: 065
  11. ENTYVIO [Suspect]
     Active Substance: VEDOLIZUMAB
     Route: 065
  12. CALCIUM CARBONATE [Suspect]
     Active Substance: CALCIUM CARBONATE
  13. CALCIUM CARBONATE [Suspect]
     Active Substance: CALCIUM CARBONATE
  14. ACETAMINOPHEN [Suspect]
     Active Substance: ACETAMINOPHEN
  15. APREMILAST [Suspect]
     Active Substance: APREMILAST
  16. APREMILAST [Suspect]
     Active Substance: APREMILAST
  17. ALENDRONIC ACID [Suspect]
     Active Substance: ALENDRONIC ACID
  18. ALENDRONIC ACID [Suspect]
     Active Substance: ALENDRONIC ACID
  19. ALENDRONIC ACID [Suspect]
     Active Substance: ALENDRONIC ACID
  20. ALENDRONIC ACID [Suspect]
     Active Substance: ALENDRONIC ACID
  21. BIOFLAVONOIDS [Suspect]
     Active Substance: BIOFLAVONOIDS
  22. BIOFLAVONOIDS [Suspect]
     Active Substance: BIOFLAVONOIDS
  23. BIOFLAVONOIDS [Suspect]
     Active Substance: BIOFLAVONOIDS
  24. BIOFLAVONOIDS [Suspect]
     Active Substance: BIOFLAVONOIDS
  25. CALCIUM GLUBIONATE [Suspect]
     Active Substance: CALCIUM GLUBIONATE
  26. CALCIUM GLUBIONATE [Suspect]
     Active Substance: CALCIUM GLUBIONATE
  27. CELECOXIB [Suspect]
     Active Substance: CELECOXIB
  28. CELECOXIB [Suspect]
     Active Substance: CELECOXIB
  29. CERTOLIZUMAB PEGOL [Suspect]
     Active Substance: CERTOLIZUMAB PEGOL
  30. CERTOLIZUMAB PEGOL [Suspect]
     Active Substance: CERTOLIZUMAB PEGOL
  31. CHLORHEXIDINE GLUCONATE [Suspect]
     Active Substance: CHLORHEXIDINE GLUCONATE
  32. CHLORHEXIDINE GLUCONATE [Suspect]
     Active Substance: CHLORHEXIDINE GLUCONATE
  33. CHLORHEXIDINE GLUCONATE [Suspect]
     Active Substance: CHLORHEXIDINE GLUCONATE
  34. CHLORHEXIDINE GLUCONATE [Suspect]
     Active Substance: CHLORHEXIDINE GLUCONATE
  35. CIMZIA [Suspect]
     Active Substance: CERTOLIZUMAB PEGOL
  36. CIMZIA [Suspect]
     Active Substance: CERTOLIZUMAB PEGOL
  37. CORTISONE ACETATE [Suspect]
     Active Substance: CORTISONE ACETATE
  38. CORTISONE ACETATE [Suspect]
     Active Substance: CORTISONE ACETATE
  39. CORTISONE ACETATE [Suspect]
     Active Substance: CORTISONE ACETATE
  40. CORTISONE ACETATE [Suspect]
     Active Substance: CORTISONE ACETATE
  41. CALCIUM CITRATE [Suspect]
     Active Substance: CALCIUM CITRATE
  42. CALCIUM CITRATE [Suspect]
     Active Substance: CALCIUM CITRATE
  43. CETIRIZINE HYDROCHLORIDE [Suspect]
     Active Substance: CETIRIZINE HYDROCHLORIDE
  44. CETIRIZINE HYDROCHLORIDE [Suspect]
     Active Substance: CETIRIZINE HYDROCHLORIDE
  45. CLONIDINE HYDROCHLORIDE [Suspect]
     Active Substance: CLONIDINE HYDROCHLORIDE
  46. CLONIDINE HYDROCHLORIDE [Suspect]
     Active Substance: CLONIDINE HYDROCHLORIDE
  47. CHLORHEXIDINE [Suspect]
     Active Substance: CHLORHEXIDINE
  48. CHLORHEXIDINE [Suspect]
     Active Substance: CHLORHEXIDINE
  49. CHLORHEXIDINE [Suspect]
     Active Substance: CHLORHEXIDINE
  50. CHLORHEXIDINE [Suspect]
     Active Substance: CHLORHEXIDINE
  51. DESOXIMETASONE [Suspect]
     Active Substance: DESOXIMETASONE
  52. DESOXIMETASONE [Suspect]
     Active Substance: DESOXIMETASONE
  53. DESOXIMETASONE [Suspect]
     Active Substance: DESOXIMETASONE
  54. DESOXIMETASONE [Suspect]
     Active Substance: DESOXIMETASONE
  55. DICLOFENAC POTASSIUM [Suspect]
     Active Substance: DICLOFENAC POTASSIUM
  56. DICLOFENAC POTASSIUM [Suspect]
     Active Substance: DICLOFENAC POTASSIUM
  57. DICLOFENAC POTASSIUM [Suspect]
     Active Substance: DICLOFENAC POTASSIUM
  58. DICLOFENAC POTASSIUM [Suspect]
     Active Substance: DICLOFENAC POTASSIUM
  59. DICLOFENAC SODIUM [Suspect]
     Active Substance: DICLOFENAC SODIUM
  60. DICLOFENAC SODIUM [Suspect]
     Active Substance: DICLOFENAC SODIUM
  61. DICLOFENAC SODIUM [Suspect]
     Active Substance: DICLOFENAC SODIUM
  62. DICLOFENAC SODIUM [Suspect]
     Active Substance: DICLOFENAC SODIUM
  63. DILTIAZEM HYDROCHLORIDE [Suspect]
     Active Substance: DILTIAZEM HYDROCHLORIDE
  64. DILTIAZEM HYDROCHLORIDE [Suspect]
     Active Substance: DILTIAZEM HYDROCHLORIDE
  65. DILTIAZEM HYDROCHLORIDE [Suspect]
     Active Substance: DILTIAZEM HYDROCHLORIDE
  66. DILTIAZEM HYDROCHLORIDE [Suspect]
     Active Substance: DILTIAZEM HYDROCHLORIDE
  67. DIPHENHYDRAMINE [Suspect]
     Active Substance: DIPHENHYDRAMINE
  68. DIPHENHYDRAMINE [Suspect]
     Active Substance: DIPHENHYDRAMINE
  69. DOXYCYCLINE HYCLATE [Suspect]
     Active Substance: DOXYCYCLINE HYCLATE
  70. DOXYCYCLINE HYCLATE [Suspect]
     Active Substance: DOXYCYCLINE HYCLATE
  71. DOXYCYCLINE HYCLATE [Suspect]
     Active Substance: DOXYCYCLINE HYCLATE
  72. DOXYCYCLINE HYCLATE [Suspect]
     Active Substance: DOXYCYCLINE HYCLATE
  73. ERELZI [Suspect]
     Active Substance: ETANERCEPT-SZZS
  74. ERELZI [Suspect]
     Active Substance: ETANERCEPT-SZZS
  75. SULFISOMIDINE [Suspect]
     Active Substance: SULFISOMIDINE
  76. SULFISOMIDINE [Suspect]
     Active Substance: SULFISOMIDINE
  77. FOLIC ACID [Suspect]
     Active Substance: FOLIC ACID
  78. FOLIC ACID [Suspect]
     Active Substance: FOLIC ACID
  79. FOLIC ACID [Suspect]
     Active Substance: FOLIC ACID
  80. FOLIC ACID [Suspect]
     Active Substance: FOLIC ACID
  81. GOLIMUMAB [Suspect]
     Active Substance: GOLIMUMAB
  82. GOLIMUMAB [Suspect]
     Active Substance: GOLIMUMAB
  83. GOLIMUMAB [Suspect]
     Active Substance: GOLIMUMAB
  84. GOLIMUMAB [Suspect]
     Active Substance: GOLIMUMAB
  85. GRAMICIDIN [Suspect]
     Active Substance: GRAMICIDIN
  86. GRAMICIDIN [Suspect]
     Active Substance: GRAMICIDIN
  87. GRAMICIDIN [Suspect]
     Active Substance: GRAMICIDIN
  88. GRAMICIDIN [Suspect]
     Active Substance: GRAMICIDIN
  89. HUMIRA [Suspect]
     Active Substance: ADALIMUMAB
  90. HUMIRA [Suspect]
     Active Substance: ADALIMUMAB
  91. HUMIRA [Suspect]
     Active Substance: ADALIMUMAB
  92. HUMIRA [Suspect]
     Active Substance: ADALIMUMAB
  93. IMURAN [Suspect]
     Active Substance: AZATHIOPRINE
  94. IMURAN [Suspect]
     Active Substance: AZATHIOPRINE
  95. ISOPROPYL ALCOHOL [Suspect]
     Active Substance: ISOPROPYL ALCOHOL
  96. ISOPROPYL ALCOHOL [Suspect]
     Active Substance: ISOPROPYL ALCOHOL
  97. ISOPROPYL ALCOHOL [Suspect]
     Active Substance: ISOPROPYL ALCOHOL
  98. ISOPROPYL ALCOHOL [Suspect]
     Active Substance: ISOPROPYL ALCOHOL
  99. PREGABALIN [Suspect]
     Active Substance: PREGABALIN
  100. PREGABALIN [Suspect]
     Active Substance: PREGABALIN
  101. PREGABALIN [Suspect]
     Active Substance: PREGABALIN
  102. PREGABALIN [Suspect]
     Active Substance: PREGABALIN
  103. QUETIAPINE FUMARATE [Suspect]
     Active Substance: QUETIAPINE FUMARATE
  104. QUETIAPINE FUMARATE [Suspect]
     Active Substance: QUETIAPINE FUMARATE
  105. QUETIAPINE FUMARATE [Suspect]
     Active Substance: QUETIAPINE FUMARATE
  106. QUETIAPINE FUMARATE [Suspect]
     Active Substance: QUETIAPINE FUMARATE
  107. DICLOFENAC DIETHYLAMINE [Suspect]
     Active Substance: DICLOFENAC DIETHYLAMINE
  108. DICLOFENAC DIETHYLAMINE [Suspect]
     Active Substance: DICLOFENAC DIETHYLAMINE
  109. DICLOFENAC DIETHYLAMINE [Suspect]
     Active Substance: DICLOFENAC DIETHYLAMINE
  110. DICLOFENAC DIETHYLAMINE [Suspect]
     Active Substance: DICLOFENAC DIETHYLAMINE
  111. CALCIUM [Suspect]
     Active Substance: CALCIUM
  112. CALCIUM [Suspect]
     Active Substance: CALCIUM
  113. PANTOPRAZOLE [Suspect]
     Active Substance: PANTOPRAZOLE
  114. METHOTREXATE [Suspect]
     Active Substance: METHOTREXATE
  115. METHOTREXATE [Suspect]
     Active Substance: METHOTREXATE
  116. METHOTREXATE [Suspect]
     Active Substance: METHOTREXATE
  117. ENBREL [Suspect]
     Active Substance: ETANERCEPT
  118. HYDROCORTISONE SODIUM SUCCINATE [Suspect]
     Active Substance: HYDROCORTISONE SODIUM SUCCINATE
  119. HYDROCORTISONE SODIUM SUCCINATE [Suspect]
     Active Substance: HYDROCORTISONE SODIUM SUCCINATE
  120. INFLIXIMAB [Suspect]
     Active Substance: INFLIXIMAB
  121. METHYLPREDNISOLONE SODIUM SUCCINATE [Suspect]
     Active Substance: METHYLPREDNISOLONE SODIUM SUCCINATE
  122. MESALAMINE [Suspect]
     Active Substance: MESALAMINE
  123. MESALAMINE [Suspect]
     Active Substance: MESALAMINE
  124. ENTYVIO [Suspect]
     Active Substance: VEDOLIZUMAB
  125. ACETAMINOPHEN [Suspect]
     Active Substance: ACETAMINOPHEN
  126. ACETAMINOPHEN [Suspect]
     Active Substance: ACETAMINOPHEN

REACTIONS (13)
  - General physical health deterioration [Fatal]
  - Glossodynia [Fatal]
  - Grip strength decreased [Fatal]
  - Hand deformity [Fatal]
  - Headache [Fatal]
  - Helicobacter infection [Fatal]
  - Hepatic cirrhosis [Fatal]
  - Hepatic enzyme increased [Fatal]
  - Hypercholesterolaemia [Fatal]
  - Hypersensitivity [Fatal]
  - Hypertension [Fatal]
  - Hypoaesthesia [Fatal]
  - Impaired healing [Fatal]
